FAERS Safety Report 7951861-0 (Version None)
Quarter: 2011Q4

REPORT INFORMATION
  Report Type: 
  Country: None (occurrence: None)
  Receive Date: 20111201
  Receipt Date: 20111116
  Transmission Date: 20120403
  Serious: Yes (Other)
  Sender: FDA-Public Use
  Company Number: US-ARROW GEN-2011-19884

PATIENT
  Age: 66 Year
  Sex: Male

DRUGS (4)
  1. PREDNISONE TAB [Suspect]
     Indication: IMMUNOSUPPRESSION
     Dosage: 20MG ORALLY DAILY WITH TAPERING OF 5 MG EVERY 2 WEEKS, THEN 10MG ORALLY DAILY (REGIMEN REDUCTION)
     Route: 048
  2. TACROLIMUS [Suspect]
     Indication: IMMUNOSUPPRESSION
     Dosage: 5 MG, BID
     Route: 048
  3. MYCOPHENOLATE MEFETIL [Suspect]
     Indication: IMMUNOSUPPRESSION
     Dosage: 1000 MG, BID
     Route: 048
  4. TACROLIMUS [Suspect]
     Dosage: 2.5 MG, BID (IMMUNOSUPPRESSIVE REGIMEN REDUCED)
     Route: 048

REACTIONS (4)
  - PYREXIA [None]
  - EPSTEIN-BARR VIRUS ASSOCIATED LYMPHOPROLIFERATIVE DISORDER [None]
  - ABDOMINAL PAIN UPPER [None]
  - PLASMACYTOMA [None]
